FAERS Safety Report 12212847 (Version 2)
Quarter: 2016Q2

REPORT INFORMATION
  Report Type: Spontaneous
  Country: PT (occurrence: PT)
  Receive Date: 20160328
  Receipt Date: 20160414
  Transmission Date: 20160815
  Serious: Yes (Other)
  Sender: FDA-Public Use
  Company Number: PT-ROCHE-1731334

PATIENT
  Age: 44 Year
  Sex: Male

DRUGS (1)
  1. ACTILYSE [Suspect]
     Active Substance: ALTEPLASE
     Indication: CEREBROVASCULAR ACCIDENT
     Dosage: 0.9MG/KG OVER 1 HOUR.
     Route: 042

REACTIONS (4)
  - Cerebral artery thrombosis [Unknown]
  - Ventricular fibrillation [Unknown]
  - Cerebral ischaemia [Unknown]
  - Arrhythmia [Unknown]
